FAERS Safety Report 7466556-X (Version None)
Quarter: 2011Q2

REPORT INFORMATION
  Report Type: 
  Country: None (occurrence: None)
  Receive Date: 20110509
  Receipt Date: 20110505
  Transmission Date: 20111010
  Serious: Yes (Death, Other)
  Sender: FDA-Public Use
  Company Number: US-ASTRAZENECA-2011SE26195

PATIENT
  Age: 26 Year
  Sex: Male

DRUGS (10)
  1. XANAX [Suspect]
  2. IBUPROFEN [Suspect]
  3. SEROQUEL [Suspect]
     Route: 048
  4. OXYCODONE HYDROCHLORIDE [Suspect]
  5. COCAINE [Suspect]
  6. MORPHINE [Suspect]
  7. HYDROXYZINE [Suspect]
  8. ESCITALOPRAM [Suspect]
  9. TCH-COOH [Suspect]
  10. BENZODIAZEPINE [Suspect]

REACTIONS (2)
  - TOXICITY TO VARIOUS AGENTS [None]
  - DRUG SCREEN POSITIVE [None]
